FAERS Safety Report 9355877 (Version 2)
Quarter: 2013Q3

REPORT INFORMATION
  Report Type: Spontaneous
  Country: GB (occurrence: GB)
  Receive Date: 20130619
  Receipt Date: 20130913
  Transmission Date: 20140515
  Serious: No
  Sender: FDA-Public Use
  Company Number: GB-ABBOTT-13P-167-1105193-00

PATIENT
  Sex: 0

DRUGS (1)
  1. ULTANE [Suspect]
     Indication: PRODUCT USED FOR UNKNOWN INDICATION

REACTIONS (2)
  - Occupational exposure to product [Recovered/Resolved]
  - Product container issue [Recovered/Resolved]
